FAERS Safety Report 19809101 (Version 1)
Quarter: 2021Q3

REPORT INFORMATION
  Report Type: Spontaneous
  Country: US (occurrence: US)
  Receive Date: 20210908
  Receipt Date: 20210908
  Transmission Date: 20211014
  Serious: No
  Sender: FDA-Public Use
  Company Number: US-CELGENEUS-USA-20210809488

PATIENT
  Age: 17 Year
  Sex: Male

DRUGS (1)
  1. THALOMID [Suspect]
     Active Substance: THALIDOMIDE
     Indication: MALIGNANT NEOPLASM OF SPINAL CORD
     Dosage: 200 MILLIGRAM
     Route: 048
     Dates: start: 202010

REACTIONS (4)
  - Gait disturbance [Unknown]
  - Feeling abnormal [Unknown]
  - Alopecia [Unknown]
  - Constipation [Unknown]

NARRATIVE: CASE EVENT DATE: 20210823
